FAERS Safety Report 20649210 (Version 4)
Quarter: 2022Q4

REPORT INFORMATION
  Report Type: Spontaneous
  Country: US (occurrence: US)
  Receive Date: 20220329
  Receipt Date: 20221207
  Transmission Date: 20230113
  Serious: Yes (Death, Hospitalization, Other)
  Sender: FDA-Public Use
  Company Number: US-TAKEDA-2022TUS020444

PATIENT
  Age: 69 Year
  Sex: Female
  Weight: 56 kg

DRUGS (17)
  1. GATTEX [Suspect]
     Active Substance: TEDUGLUTIDE\WATER
     Indication: Short-bowel syndrome
     Dosage: UNK
     Route: 065
     Dates: start: 201804
  2. GATTEX [Suspect]
     Active Substance: TEDUGLUTIDE\WATER
     Indication: Short-bowel syndrome
     Dosage: UNK
     Route: 065
     Dates: start: 201804
  3. GATTEX [Suspect]
     Active Substance: TEDUGLUTIDE\WATER
     Indication: Short-bowel syndrome
     Dosage: UNK
     Route: 065
     Dates: start: 201804
  4. GATTEX [Suspect]
     Active Substance: TEDUGLUTIDE\WATER
     Indication: Short-bowel syndrome
     Dosage: UNK
     Route: 065
     Dates: start: 201804
  5. GATTEX [Suspect]
     Active Substance: TEDUGLUTIDE\WATER
     Dosage: 2.6 MILLIGRAM, QD
     Route: 058
     Dates: start: 20180601, end: 20210901
  6. GATTEX [Suspect]
     Active Substance: TEDUGLUTIDE\WATER
     Dosage: 2.6 MILLIGRAM, QD
     Route: 058
     Dates: start: 20180601, end: 20210901
  7. GATTEX [Suspect]
     Active Substance: TEDUGLUTIDE\WATER
     Dosage: 2.6 MILLIGRAM, QD
     Route: 058
     Dates: start: 20180601, end: 20210901
  8. GATTEX [Suspect]
     Active Substance: TEDUGLUTIDE\WATER
     Dosage: 2.6 MILLIGRAM, QD
     Route: 058
     Dates: start: 20180601, end: 20210901
  9. GATTEX [Suspect]
     Active Substance: TEDUGLUTIDE\WATER
     Dosage: 2.6 MILLIGRAM, QD
     Route: 058
     Dates: start: 201806, end: 20210818
  10. GATTEX [Suspect]
     Active Substance: TEDUGLUTIDE\WATER
     Dosage: 2.6 MILLIGRAM, QD
     Route: 058
     Dates: start: 201806, end: 20210818
  11. GATTEX [Suspect]
     Active Substance: TEDUGLUTIDE\WATER
     Dosage: 2.6 MILLIGRAM, QD
     Route: 058
     Dates: start: 201806, end: 20210818
  12. GATTEX [Suspect]
     Active Substance: TEDUGLUTIDE\WATER
     Dosage: 2.6 MILLIGRAM, QD
     Route: 058
     Dates: start: 201806, end: 20210818
  13. GATTEX [Suspect]
     Active Substance: TEDUGLUTIDE\WATER
     Dosage: 2.6 MILLIGRAM, QD
     Route: 058
     Dates: start: 20180611, end: 20210901
  14. GATTEX [Suspect]
     Active Substance: TEDUGLUTIDE\WATER
     Dosage: 2.6 MILLIGRAM, QD
     Route: 058
     Dates: start: 20180611, end: 20210901
  15. GATTEX [Suspect]
     Active Substance: TEDUGLUTIDE\WATER
     Dosage: 2.6 MILLIGRAM, QD
     Route: 058
     Dates: start: 20180611, end: 20210901
  16. GATTEX [Suspect]
     Active Substance: TEDUGLUTIDE\WATER
     Dosage: 2.6 MILLIGRAM, QD
     Route: 058
     Dates: start: 20180611, end: 20210901
  17. VYXEOS [Concomitant]
     Active Substance: CYTARABINE\DAUNORUBICIN
     Indication: Acute myeloid leukaemia
     Dosage: UNK
     Route: 065
     Dates: start: 20210823, end: 20210827

REACTIONS (3)
  - Acute myeloid leukaemia [Fatal]
  - Pain in extremity [Unknown]
  - Peripheral swelling [Unknown]

NARRATIVE: CASE EVENT DATE: 20210818
